FAERS Safety Report 16681208 (Version 1)
Quarter: 2019Q3

REPORT INFORMATION
  Report Type: Spontaneous
  Country: GB (occurrence: PT)
  Receive Date: 20190808
  Receipt Date: 20190808
  Transmission Date: 20191004
  Serious: Yes (Other)
  Sender: FDA-Public Use
  Company Number: PT-TEVA-2019-PT-1088342

PATIENT
  Age: 79 Year
  Sex: Male

DRUGS (5)
  1. TAMSULOSIN [Suspect]
     Active Substance: TAMSULOSIN
     Indication: BENIGN PROSTATIC HYPERPLASIA
     Route: 065
  2. OMNIC [Suspect]
     Active Substance: TAMSULOSIN HYDROCHLORIDE
     Dosage: 1 DF, ONCE DAILY (1 TABLET/DAY)
     Route: 048
  3. OMNIC [Suspect]
     Active Substance: TAMSULOSIN HYDROCHLORIDE
     Indication: BENIGN PROSTATIC HYPERPLASIA
     Dosage: 1 DF, ONCE DAILY (1 TABLET/DAY)
     Route: 048
  4. OMNIC [Suspect]
     Active Substance: TAMSULOSIN HYDROCHLORIDE
     Dosage: 1 DF, ONCE DAILY (1 TABLET/DAY)
     Route: 048
  5. OMNIC [Suspect]
     Active Substance: TAMSULOSIN HYDROCHLORIDE
     Dosage: 1 DF, ONCE DAILY (1 TABLET/DAY)

REACTIONS (3)
  - Ejaculation disorder [Not Recovered/Not Resolved]
  - Drug ineffective [Unknown]
  - Erectile dysfunction [Not Recovered/Not Resolved]
